FAERS Safety Report 21661110 (Version 1)
Quarter: 2022Q4

REPORT INFORMATION
  Report Type: Spontaneous
  Country: CN (occurrence: CN)
  Receive Date: 20221130
  Receipt Date: 20221130
  Transmission Date: 20230113
  Serious: Yes (Other)
  Sender: FDA-Public Use
  Company Number: None

PATIENT
  Age: 71 Year
  Sex: Female

DRUGS (1)
  1. MANNITOL [Suspect]
     Active Substance: MANNITOL
     Indication: Reduction of increased intracranial pressure
     Dosage: 125 MILLILITERS (ML), ONCE DAILY AND DOSAGE FORM: INJECTION
     Route: 041
     Dates: start: 20221024, end: 20221029

REACTIONS (1)
  - Renal injury [Not Recovered/Not Resolved]

NARRATIVE: CASE EVENT DATE: 20221028
